FAERS Safety Report 4339928-X (Version None)
Quarter: 2004Q2

REPORT INFORMATION
  Report Type: 
  Country: None (occurrence: None)
  Receive Date: 20040414
  Receipt Date: 20040414
  Transmission Date: 20050107
  Serious: Yes (Life-Threatening, Hospitalization, Disabling, Other)
  Sender: FDA-Public Use
  Company Number: None

PATIENT
  Age: 39 Year
  Sex: Female
  Weight: 72.5755 kg

DRUGS (8)
  1. PAXIL [Suspect]
     Indication: ANXIETY
     Dosage: DAILY
     Dates: start: 20000701, end: 20030101
  2. PAXIL [Suspect]
     Indication: POST-TRAUMATIC STRESS DISORDER
     Dosage: DAILY
     Dates: start: 20000701, end: 20030101
  3. XANAX [Suspect]
     Indication: ANXIETY
     Dosage: DAILY
     Dates: start: 20000701, end: 20030101
  4. XANAX [Suspect]
     Indication: POST-TRAUMATIC STRESS DISORDER
     Dosage: DAILY
     Dates: start: 20000701, end: 20030101
  5. EFFEXOR [Suspect]
     Indication: ANXIETY
     Dosage: DAILY
     Dates: start: 20000701, end: 20030101
  6. EFFEXOR [Suspect]
     Indication: POST-TRAUMATIC STRESS DISORDER
     Dosage: DAILY
     Dates: start: 20000701, end: 20030101
  7. LUVOX [Suspect]
     Indication: ANXIETY
     Dosage: DAILY
     Dates: start: 20000701, end: 20030101
  8. LUVOX [Suspect]
     Indication: POST-TRAUMATIC STRESS DISORDER
     Dosage: DAILY
     Dates: start: 20000701, end: 20030101

REACTIONS (20)
  - ABNORMAL BEHAVIOUR [None]
  - AGITATION [None]
  - AKATHISIA [None]
  - ALCOHOL USE [None]
  - ANXIETY [None]
  - COMPULSIONS [None]
  - DELUSION [None]
  - DRUG WITHDRAWAL SYNDROME [None]
  - HALLUCINATION [None]
  - HOSTILITY [None]
  - IMPULSIVE BEHAVIOUR [None]
  - INSOMNIA [None]
  - INTENTIONAL SELF-INJURY [None]
  - IRRITABILITY [None]
  - MANIA [None]
  - MENTAL DISORDER [None]
  - PANIC ATTACK [None]
  - SELF INJURIOUS BEHAVIOUR [None]
  - SMOKER [None]
  - WEIGHT INCREASED [None]
